FAERS Safety Report 4428458-2 (Version None)
Quarter: 2004Q3

REPORT INFORMATION
  Report Type: 
  Country: None (occurrence: None)
  Receive Date: 20040813
  Receipt Date: 20040803
  Transmission Date: 20050211
  Serious: Yes (Death)
  Sender: FDA-Public Use
  Company Number: 2004PK01218

PATIENT
  Age: 19 Year
  Sex: Male
  Weight: 75 kg

DRUGS (13)
  1. PROPOFOL [Suspect]
     Indication: SEDATION
     Dosage: 150-200 MG/H
     Dates: start: 20040618
  2. PROPOFOL [Suspect]
     Indication: SEDATION
     Dosage: 75 MG/HR IVD
     Dates: start: 20040619
  3. OMEPRAZOLE [Suspect]
     Dates: start: 20040601, end: 20040601
  4. SOLU-MEDROL [Suspect]
     Indication: QUADRIPLEGIA
     Dates: start: 20040618
  5. SOLU-CORTEF [Suspect]
     Indication: QUADRIPLEGIA
     Dates: start: 20040618
  6. ERYTHROMYCIN [Concomitant]
  7. AUGMENTIN '125' [Concomitant]
  8. LASIX [Concomitant]
  9. FENTANYL [Concomitant]
  10. INSULIN [Concomitant]
  11. ACETYLCYSTEINE [Concomitant]
  12. NORADRENALINE [Concomitant]
  13. TAZOBAC [Concomitant]

REACTIONS (5)
  - BRAIN OEDEMA [None]
  - HYPERKALAEMIA [None]
  - PNEUMONIA ASPIRATION [None]
  - RENAL FAILURE CHRONIC [None]
  - RHABDOMYOLYSIS [None]
